FAERS Safety Report 8563914-7 (Version None)
Quarter: 2012Q3

REPORT INFORMATION
  Report Type: 
  Country: None (occurrence: None)
  Receive Date: 20120727
  Receipt Date: 20120727
  Transmission Date: 20120928
  Serious: Yes (Life-Threatening)
  Sender: FDA-Public Use
  Company Number: None

PATIENT
  Sex: Female
  Weight: 75.7507 kg

DRUGS (1)
  1. MIRENA [Suspect]
     Indication: CONTRACEPTION
     Dosage: 52 MG ONCE PER 5 YEARS INTRA-UTERINE
     Route: 015
     Dates: start: 20101112, end: 20120725

REACTIONS (3)
  - CONTUSION [None]
  - DEEP VEIN THROMBOSIS [None]
  - HAEMORRHAGE [None]
